FAERS Safety Report 4566614-3 (Version None)
Quarter: 2005Q1

REPORT INFORMATION
  Report Type: 
  Country: None (occurrence: None)
  Receive Date: 20050201
  Receipt Date: 20041217
  Transmission Date: 20050727
  Serious: Yes (Death, Life-Threatening, Hospitalization)
  Sender: FDA-Public Use
  Company Number: FR-MERCK-0412FRA00059

PATIENT
  Age: 74 Year
  Sex: Male

DRUGS (5)
  1. VIOXX [Suspect]
     Route: 065
     Dates: start: 20021101
  2. PINDOLOL [Suspect]
     Indication: HYPERTENSION
     Route: 048
  3. TAMSULOSIN HYDROCHLORIDE [Suspect]
     Indication: BENIGN PROSTATIC HYPERPLASIA
     Route: 048
  4. GLIMEPIRIDE [Concomitant]
     Indication: DIABETES MELLITUS NON-INSULIN-DEPENDENT
     Route: 048
  5. METFORMIN [Concomitant]
     Indication: DIABETES MELLITUS NON-INSULIN-DEPENDENT
     Route: 048

REACTIONS (8)
  - ANOXIA [None]
  - ARRHYTHMIA [None]
  - CARDIAC ARREST [None]
  - COMA [None]
  - GENERAL PHYSICAL HEALTH DETERIORATION [None]
  - LUNG INFECTION PSEUDOMONAL [None]
  - NOSOCOMIAL INFECTION [None]
  - SEPSIS [None]
